FAERS Safety Report 4592563-0 (Version None)
Quarter: 2005Q1

REPORT INFORMATION
  Report Type: 
  Country: None (occurrence: None)
  Receive Date: 20050222
  Receipt Date: 20050204
  Transmission Date: 20050727
  Serious: Yes (Hospitalization)
  Sender: FDA-Public Use
  Company Number: 2005AP00820

PATIENT
  Age: 64 Year
  Sex: Female

DRUGS (5)
  1. TENORMIN [Suspect]
     Indication: ESSENTIAL HYPERTENSION
  2. ARANESP [Suspect]
     Indication: GLOMERULONEPHRITIS CHRONIC
     Dosage: 40 MG Q2WK IV
     Route: 042
     Dates: start: 20031127, end: 20031128
  3. CARDIZEM [Suspect]
     Indication: ESSENTIAL HYPERTENSION
  4. CALCIUM CARBONATE [Concomitant]
  5. CALCITRIOL [Concomitant]

REACTIONS (7)
  - ADVERSE DRUG REACTION [None]
  - ANOREXIA [None]
  - DEHYDRATION [None]
  - EMOTIONAL DISTRESS [None]
  - PARAKERATOSIS [None]
  - PRURITUS [None]
  - RASH ERYTHEMATOUS [None]
